FAERS Safety Report 9630821 (Version 2)
Quarter: 2014Q2

REPORT INFORMATION
  Report Type: Spontaneous
  Country: US (occurrence: None)
  Receive Date: 20131016
  Receipt Date: 20140415
  Transmission Date: 20141212
  Serious: Yes (Other)
  Sender: FDA-Public Use
  Company Number: AUR-APL-2013-08544

PATIENT
  Age: 31 Year
  Sex: Male
  Weight: 75.9 kg

DRUGS (11)
  1. RISPERIDONE (RISPERIDONE) [Suspect]
     Indication: AUTISM SPECTRUM DISORDER
     Dosage: 2 MG AT BEDTIME WITH VARIABLE DOSING OVER 4 YEARS AND A MAXIMUM TOTAL DAILY DOSE OF 4 MG, UNKNOWN
  2. RISPERIDONE (RISPERIDONE) [Suspect]
     Indication: ABNORMAL BEHAVIOUR
     Dosage: 2 MG AT BEDTIME WITH VARIABLE DOSING OVER 4 YEARS AND A MAXIMUM TOTAL DAILY DOSE OF 4 MG, UNKNOWN
  3. CLOMIPRAMINE (CLOMIPRAMINE) [Concomitant]
  4. QUETIAIPNE (QUETIAPINE) [Concomitant]
  5. ATENOLOL (ATENOLOL) [Concomitant]
  6. DIVALPROEX SODIUM (VALPROATE SEMISODIUM) [Concomitant]
  7. DOCUSATE (DOCUSATE) [Concomitant]
  8. GLATIRAMER (GLATIRAMER) [Concomitant]
  9. HYDROCHLOROTHIAZIDE (HYDROCHLOROTHIAZIDE) [Concomitant]
  10. MECLIZINE (MECLOZINE) [Concomitant]
  11. VITAMINS [Concomitant]

REACTIONS (6)
  - Pleurothotonus [None]
  - Posture abnormal [None]
  - Psychiatric symptom [None]
  - Condition aggravated [None]
  - Drug ineffective [None]
  - Ataxia [None]
